FAERS Safety Report 6205713-7 (Version None)
Quarter: 2009Q2

REPORT INFORMATION
  Report Type: 
  Country: None (occurrence: None)
  Receive Date: 20090527
  Receipt Date: 20090422
  Transmission Date: 20091009
  Serious: No
  Sender: FDA-Public Use
  Company Number: US-ABBOTT-09P-163-0569468-00

PATIENT
  Sex: Male

DRUGS (12)
  1. SIMCOR [Suspect]
     Indication: BLOOD CHOLESTEROL INCREASED
     Dosage: 500/20MG AT BEDTIME
     Dates: start: 20090301
  2. CIPRO [Concomitant]
     Indication: DIVERTICULUM
  3. FLAGYL [Concomitant]
     Indication: DIVERTICULUM
  4. COREG [Concomitant]
     Indication: DRUG USE FOR UNKNOWN INDICATION
  5. LISINOPRIL [Concomitant]
     Indication: DRUG USE FOR UNKNOWN INDICATION
  6. ATACAND [Concomitant]
     Indication: DRUG USE FOR UNKNOWN INDICATION
  7. ACTOS [Concomitant]
     Indication: DRUG USE FOR UNKNOWN INDICATION
  8. ASPIRIN [Concomitant]
     Indication: DRUG USE FOR UNKNOWN INDICATION
  9. FLAX SEED [Concomitant]
     Indication: DRUG USE FOR UNKNOWN INDICATION
  10. CINNAMON [Concomitant]
     Indication: DRUG USE FOR UNKNOWN INDICATION
  11. CENTRUM SILVER [Concomitant]
     Indication: DRUG USE FOR UNKNOWN INDICATION
  12. B50 COMPLEX [Concomitant]
     Indication: DRUG USE FOR UNKNOWN INDICATION

REACTIONS (1)
  - FLUSHING [None]
